FAERS Safety Report 21784272 (Version 1)
Quarter: 2022Q4

REPORT INFORMATION
  Report Type: Spontaneous
  Country: US (occurrence: None)
  Receive Date: 20221226
  Receipt Date: 20221226
  Transmission Date: 20230113
  Serious: Yes (Disabling, Other)
  Sender: FDA-Public Use
  Company Number: None

PATIENT
  Age: 36 Year
  Sex: Female
  Weight: 126 kg

DRUGS (15)
  1. VRAYLAR [Suspect]
     Active Substance: CARIPRAZINE
     Indication: Bipolar I disorder
     Dosage: FREQUENCY : AT BEDTIME;?
     Route: 048
  2. DEVICE [Concomitant]
     Active Substance: DEVICE
  3. VYVANSE [Concomitant]
     Active Substance: LISDEXAMFETAMINE DIMESYLATE
  4. DULOXETINE [Concomitant]
     Active Substance: DULOXETINE
  5. PRAZOSIN [Concomitant]
     Active Substance: PRAZOSIN
  6. LEVOTHYROXINE [Concomitant]
     Active Substance: LEVOTHYROXINE
  7. HYDROCODONE [Concomitant]
     Active Substance: HYDROCODONE
  8. FIORICET [Concomitant]
     Active Substance: ACETAMINOPHEN\BUTALBITAL\CAFFEINE
  9. ATIVAN [Concomitant]
     Active Substance: LORAZEPAM
  10. VRAYLAR [Concomitant]
     Active Substance: CARIPRAZINE
  11. tardive dyskinesia [Concomitant]
  12. Flintstones Multivitamin [Concomitant]
  13. CALCIUM [Concomitant]
     Active Substance: CALCIUM
  14. IRON [Concomitant]
     Active Substance: IRON
  15. VITAMIN C [Concomitant]
     Active Substance: ASCORBIC ACID

REACTIONS (2)
  - Tardive dyskinesia [None]
  - Therapy interrupted [None]

NARRATIVE: CASE EVENT DATE: 20220601
